FAERS Safety Report 7463672-3 (Version None)
Quarter: 2011Q2

REPORT INFORMATION
  Report Type: 
  Country: None (occurrence: None)
  Receive Date: 20110506
  Receipt Date: 20110426
  Transmission Date: 20111010
  Serious: Yes (Hospitalization)
  Sender: FDA-Public Use
  Company Number: JP-MERCK-1104USA01466

PATIENT
  Age: 87 Year
  Sex: Female
  Weight: 53 kg

DRUGS (5)
  1. PEPCID RPD [Suspect]
     Route: 048
     Dates: end: 20110403
  2. PARIET [Concomitant]
     Route: 065
     Dates: end: 20110403
  3. SENNOSIDES [Concomitant]
     Route: 065
     Dates: end: 20110403
  4. LIPITOR [Suspect]
     Route: 048
     Dates: end: 20110403
  5. PANCREAZE [Concomitant]
     Route: 065
     Dates: end: 20110403

REACTIONS (2)
  - MYALGIA [None]
  - BLOOD CREATINE PHOSPHOKINASE INCREASED [None]
